FAERS Safety Report 11863100 (Version 3)
Quarter: 2017Q3

REPORT INFORMATION
  Report Type: Spontaneous
  Country: JP (occurrence: JP)
  Receive Date: 20151223
  Receipt Date: 20170721
  Transmission Date: 20171127
  Serious: Yes (Other)
  Sender: FDA-Public Use
  Company Number: PHJP2015JP023359

PATIENT
  Age: 53 Year
  Sex: Female

DRUGS (2)
  1. ZOMETA [Suspect]
     Active Substance: ZOLEDRONIC ACID
     Indication: BREAST CANCER
     Dosage: UNK
     Route: 041
     Dates: start: 2010
  2. OXYCONTIN [Concomitant]
     Active Substance: OXYCODONE HYDROCHLORIDE
     Indication: CANCER PAIN
     Dosage: UNK
     Route: 065

REACTIONS (7)
  - Loose tooth [Unknown]
  - Toothache [Unknown]
  - Osteonecrosis of jaw [Unknown]
  - Exposed bone in jaw [Unknown]
  - Wound complication [Unknown]
  - Periodontal disease [Unknown]
  - Tooth loss [Unknown]
